FAERS Safety Report 5177066-7 (Version None)
Quarter: 2006Q4

REPORT INFORMATION
  Report Type: 
  Country: None (occurrence: None)
  Receive Date: 20061218
  Receipt Date: 20061215
  Transmission Date: 20070319
  Serious: Yes (Hospitalization)
  Sender: FDA-Public Use
  Company Number: FR-GLAXOSMITHKLINE-B0450779A

PATIENT
  Age: 68 Year
  Sex: Male
  Weight: 75 kg

DRUGS (1)
  1. FORTUM [Suspect]
     Indication: LUNG DISORDER
     Dosage: 6G PER DAY
     Route: 042
     Dates: start: 20061011, end: 20061021

REACTIONS (1)
  - GRAND MAL CONVULSION [None]
